FAERS Safety Report 5224935-5 (Version None)
Quarter: 2007Q1

REPORT INFORMATION
  Report Type: 
  Country: None (occurrence: None)
  Receive Date: 20070126
  Receipt Date: 20070117
  Transmission Date: 20070707
  Serious: Yes (Other)
  Sender: FDA-Public Use
  Company Number: GXKR2007PT00889

PATIENT
  Age: 72 Year
  Sex: Female
  Weight: 65 kg

DRUGS (5)
  1. ATENOLOL [Suspect]
     Dosage: 100MG, QD; ORAL
     Route: 048
     Dates: start: 20061212, end: 20061222
  2. NIMESULIDE (NIMESULIDE) [Suspect]
     Indication: PAIN
     Dosage: ORAL
     Route: 048
     Dates: start: 19960101
  3. COLECALCIFEROL [Concomitant]
  4. INDAPAMIDE [Concomitant]
  5. CALCIUM CARBONATE [Concomitant]

REACTIONS (6)
  - DIZZINESS [None]
  - DRUG INTERACTION [None]
  - INSOMNIA [None]
  - NERVOUSNESS [None]
  - TACHYCARDIA [None]
  - THIRST [None]
